FAERS Safety Report 8223992-1 (Version None)
Quarter: 2012Q1

REPORT INFORMATION
  Report Type: 
  Country: None (occurrence: None)
  Receive Date: 20120321
  Receipt Date: 20120316
  Transmission Date: 20120608
  Serious: Yes (Hospitalization, Other)
  Sender: FDA-Public Use
  Company Number: PHEH2009US16949

PATIENT
  Sex: Female

DRUGS (19)
  1. PREMARIN [Concomitant]
  2. CALCIUM CARBONATE [Concomitant]
  3. FEMARA [Concomitant]
  4. DEMEROL [Concomitant]
  5. AREDIA [Suspect]
     Indication: BREAST CANCER
  6. DYAZIDE [Concomitant]
  7. ZOFRAN [Concomitant]
  8. NEURONTIN [Concomitant]
     Dosage: 300 MG, BID
     Route: 048
  9. AREDIA [Suspect]
     Indication: OSTEOPOROSIS
     Route: 042
     Dates: start: 20030101, end: 20060607
  10. TYLENOL [Concomitant]
  11. PHENERGAN [Concomitant]
  12. LORTAB [Concomitant]
  13. ARIMIDEX [Concomitant]
  14. VANCOMYCIN [Concomitant]
  15. DILAUDID [Concomitant]
  16. PRILOSEC [Concomitant]
  17. ULTRAM [Concomitant]
  18. LEXAPRO [Concomitant]
  19. AMBIEN [Concomitant]

REACTIONS (56)
  - ABDOMINAL PAIN [None]
  - HAEMORRHOIDS [None]
  - EMPHYSEMA [None]
  - PLEURAL FIBROSIS [None]
  - OEDEMA PERIPHERAL [None]
  - ASTIGMATISM [None]
  - LIPOMA [None]
  - OSTEOPOROSIS [None]
  - PERIODONTITIS [None]
  - INJURY [None]
  - PULMONARY EMBOLISM [None]
  - ARTHRALGIA [None]
  - OSTEONECROSIS OF JAW [None]
  - MENINGITIS [None]
  - MASS [None]
  - TENOSYNOVITIS [None]
  - HYPERTONIC BLADDER [None]
  - BRONCHITIS [None]
  - CHRONIC OBSTRUCTIVE PULMONARY DISEASE [None]
  - RECTAL HAEMORRHAGE [None]
  - CARDIAC MURMUR FUNCTIONAL [None]
  - CHEST PAIN [None]
  - HYPERMETROPIA [None]
  - OSTEOMYELITIS [None]
  - EXPOSED BONE IN JAW [None]
  - LEUKOCYTOSIS [None]
  - MITRAL VALVE CALCIFICATION [None]
  - AORTIC VALVE INCOMPETENCE [None]
  - AZOTAEMIA [None]
  - BACK PAIN [None]
  - PAIN [None]
  - DECREASED INTEREST [None]
  - IMPAIRED HEALING [None]
  - PRIMARY SEQUESTRUM [None]
  - RHEUMATOID ARTHRITIS [None]
  - DIVERTICULITIS [None]
  - PLEURAL EFFUSION [None]
  - FOOT FRACTURE [None]
  - RENAL FAILURE [None]
  - FIBROMYALGIA [None]
  - INSOMNIA [None]
  - ANXIETY [None]
  - SWELLING [None]
  - HYPERTENSION [None]
  - PULMONARY GRANULOMA [None]
  - MENINGITIS VIRAL [None]
  - TRICUSPID VALVE INCOMPETENCE [None]
  - DEPRESSION [None]
  - HYPOKALAEMIA [None]
  - PRESBYOPIA [None]
  - OSTEOPENIA [None]
  - PARAESTHESIA [None]
  - TOOTH LOSS [None]
  - STRESS FRACTURE [None]
  - MITRAL VALVE INCOMPETENCE [None]
  - SEBORRHOEIC KERATOSIS [None]
